FAERS Safety Report 12328585 (Version 1)
Quarter: 2016Q2

REPORT INFORMATION
  Report Type: Spontaneous
  Country: US (occurrence: US)
  Receive Date: 20160503
  Receipt Date: 20160503
  Transmission Date: 20160815
  Serious: No
  Sender: FDA-Public Use
  Company Number: US-BEH-2015049412

PATIENT
  Age: 65 Year
  Sex: Female
  Weight: 98 kg

DRUGS (28)
  1. DILTIAZEM [Concomitant]
     Active Substance: DILTIAZEM
  2. POTASSIUM [Concomitant]
     Active Substance: POTASSIUM
  3. OXYCODONE [Concomitant]
     Active Substance: OXYCODONE
  4. CITALOPRAM [Concomitant]
     Active Substance: CITALOPRAM HYDROBROMIDE
  5. SYMBICORT [Concomitant]
     Active Substance: BUDESONIDE\FORMOTEROL FUMARATE DIHYDRATE
  6. VALACYCLOVIR [Concomitant]
     Active Substance: VALACYCLOVIR HYDROCHLORIDE
  7. DIPHENHYDRAMINE. [Concomitant]
     Active Substance: DIPHENHYDRAMINE
  8. DICLOFENAC [Concomitant]
     Active Substance: DICLOFENAC
  9. MAGNESIUM [Concomitant]
     Active Substance: MAGNESIUM
  10. SUPER B [Concomitant]
  11. L-LYSINE [Concomitant]
     Active Substance: LYSINE
  12. GABAPENTIN. [Concomitant]
     Active Substance: GABAPENTIN
  13. DIOVAN [Concomitant]
     Active Substance: VALSARTAN
  14. ZYRTEC-D [Concomitant]
     Active Substance: CETIRIZINE HYDROCHLORIDE\PSEUDOEPHEDRINE HYDROCHLORIDE
  15. FISH OIL [Concomitant]
     Active Substance: FISH OIL
  16. VITAMIN D3 [Concomitant]
     Active Substance: CHOLECALCIFEROL
  17. CORTICOSTEROIDS [Suspect]
     Active Substance: CORTICOSTEROID NOS
     Route: 008
  18. MULTIVITAMIN [Concomitant]
     Active Substance: VITAMINS
  19. PANTOPRAZOLE [Concomitant]
     Active Substance: PANTOPRAZOLE SODIUM
  20. NASACORT [Concomitant]
     Active Substance: TRIAMCINOLONE ACETONIDE
  21. TRAZODONE [Concomitant]
     Active Substance: TRAZODONE HYDROCHLORIDE
  22. VITAMIN E [Concomitant]
     Active Substance: .ALPHA.-TOCOPHEROL
  23. HIZENTRA [Suspect]
     Active Substance: HUMAN IMMUNOGLOBULIN G
     Dosage: ??-JAN-2013
     Route: 058
  24. HIZENTRA [Suspect]
     Active Substance: HUMAN IMMUNOGLOBULIN G
     Indication: IMMUNODEFICIENCY COMMON VARIABLE
     Dosage: ??-JAN-2013
     Route: 058
  25. COMBIVENT [Concomitant]
     Active Substance: ALBUTEROL SULFATE\IPRATROPIUM BROMIDE
  26. PROAIR HFA [Concomitant]
     Active Substance: ALBUTEROL SULFATE
  27. EPIPEN [Concomitant]
     Active Substance: EPINEPHRINE
  28. RECLAST [Concomitant]
     Active Substance: ZOLEDRONIC ACID

REACTIONS (1)
  - Lymphocyte morphology abnormal [Not Recovered/Not Resolved]

NARRATIVE: CASE EVENT DATE: 20141231
